FAERS Safety Report 17866720 (Version 2)
Quarter: 2020Q2

REPORT INFORMATION
  Report Type: Spontaneous
  Country: US (occurrence: US)
  Receive Date: 20200605
  Receipt Date: 20200609
  Transmission Date: 20200714
  Serious: No
  Sender: FDA-Public Use
  Company Number: US-SA-2020SA144148

PATIENT

DRUGS (1)
  1. NASACORT ALLERGY 24HR [Suspect]
     Active Substance: TRIAMCINOLONE ACETONIDE
     Indication: ALLERGY TO ANIMAL
     Dosage: 1 SPRAY , QD
     Route: 045
     Dates: start: 20200228

REACTIONS (6)
  - Hypoaesthesia [Unknown]
  - Pain [Unknown]
  - Feeling abnormal [Unknown]
  - Paraesthesia [Unknown]
  - Facial discomfort [Unknown]
  - Insomnia [Unknown]
